FAERS Safety Report 11110041 (Version 1)
Quarter: 2015Q2

REPORT INFORMATION
  Report Type: Spontaneous
  Country: US (occurrence: None)
  Receive Date: 20150512
  Receipt Date: 20150512
  Transmission Date: 20150821
  Serious: No
  Sender: FDA-Public Use
  Company Number: None

PATIENT
  Age: 69 Year
  Sex: Female

DRUGS (1)
  1. HUMIRA [Suspect]
     Active Substance: ADALIMUMAB
     Indication: PSORIATIC ARTHROPATHY
     Dosage: HUMIRA PEN 40MG WEEKLY SUB-Q
     Route: 058
     Dates: start: 20150102

REACTIONS (4)
  - Weight increased [None]
  - Nausea [None]
  - Joint swelling [None]
  - Alopecia [None]

NARRATIVE: CASE EVENT DATE: 20150420
